FAERS Safety Report 8514259-2 (Version None)
Quarter: 2012Q3

REPORT INFORMATION
  Report Type: 
  Country: None (occurrence: None)
  Receive Date: 20120717
  Receipt Date: 20120713
  Transmission Date: 20120928
  Serious: Yes (Other)
  Sender: FDA-Public Use
  Company Number: IT-PFIZER INC-2012169747

PATIENT
  Age: 63 Year
  Sex: Male
  Weight: 79 kg

DRUGS (3)
  1. SUTENT [Suspect]
     Dosage: 37.5 MG (12.5 MG + 25 MG)
     Route: 048
     Dates: start: 20120611
  2. LANREOTIDE [Concomitant]
     Indication: NEUROENDOCRINE TUMOUR
     Dosage: 120 MG, MONTHLY
     Route: 042
  3. SUTENT [Suspect]
     Indication: PANCREATIC NEUROENDOCRINE TUMOUR
     Dosage: 37.5 MG (12.5 MG + 25 MG)
     Route: 048
     Dates: start: 20120611

REACTIONS (1)
  - NEUROSENSORY HYPOACUSIS [None]
